FAERS Safety Report 12188572 (Version 1)
Quarter: 2016Q1

REPORT INFORMATION
  Report Type: Spontaneous
  Country: BR (occurrence: BR)
  Receive Date: 20160317
  Receipt Date: 20160317
  Transmission Date: 20160526
  Serious: Yes (Other)
  Sender: FDA-Public Use
  Company Number: BR-009507513-1603BRA005734

PATIENT
  Age: 53 Year
  Sex: Female
  Weight: 63 kg

DRUGS (2)
  1. LOSARTAN POTASSIUM. [Suspect]
     Active Substance: LOSARTAN POTASSIUM
     Indication: HYPERTENSION
     Dosage: 50 MG, Q12H
     Route: 048
     Dates: end: 201503
  2. SIMVASTATIN. [Suspect]
     Active Substance: SIMVASTATIN
     Indication: BLOOD CHOLESTEROL INCREASED
     Dosage: 20 MG, UNK
     Route: 048

REACTIONS (9)
  - Eyelid ptosis [Unknown]
  - Facial paralysis [Unknown]
  - Blindness unilateral [Not Recovered/Not Resolved]
  - Acoustic neuroma removal [Recovered/Resolved]
  - Intraocular pressure increased [Unknown]
  - Alopecia [Unknown]
  - Osteopenia [Not Recovered/Not Resolved]
  - Acoustic neuroma [Recovered/Resolved]
  - Anxiety [Not Recovered/Not Resolved]

NARRATIVE: CASE EVENT DATE: 1989
